FAERS Safety Report 16434604 (Version 1)
Quarter: 2019Q2

REPORT INFORMATION
  Report Type: Report from Study
  Country: CA (occurrence: CA)
  Receive Date: 20190614
  Receipt Date: 20190614
  Transmission Date: 20190711
  Serious: Yes (Hospitalization)
  Sender: FDA-Public Use
  Company Number: CA-EXELIXIS-XL18416006718

PATIENT
  Age: 80 Year
  Sex: Female
  Weight: 155.7 kg

DRUGS (1)
  1. XL184 [Suspect]
     Active Substance: CABOZANTINIB
     Indication: ENDOMETRIAL STROMAL SARCOMA
     Dosage: 60 MG, QD
     Route: 048
     Dates: start: 20140423

REACTIONS (5)
  - Lower gastrointestinal haemorrhage [Recovered/Resolved]
  - Intestinal obstruction [Unknown]
  - Abdominal pain [Recovered/Resolved]
  - Peritonitis [Recovered/Resolved]
  - Large intestine perforation [Recovered/Resolved]

NARRATIVE: CASE EVENT DATE: 20140801
